FAERS Safety Report 18610722 (Version 1)
Quarter: 2020Q4

REPORT INFORMATION
  Report Type: Spontaneous
  Country: US (occurrence: US)
  Receive Date: 20201211
  Receipt Date: 20201211
  Transmission Date: 20210114
  Serious: Yes (Other)
  Sender: FDA-Public Use
  Company Number: None

PATIENT
  Age: 69 Year
  Sex: Female

DRUGS (14)
  1. TOPIRAMATE. [Concomitant]
     Active Substance: TOPIRAMATE
  2. OLMESARTAN 20MG [Concomitant]
     Active Substance: OLMESARTAN
  3. FEXOFENADINE 180MG [Concomitant]
     Active Substance: FEXOFENADINE HYDROCHLORIDE
  4. MONTELUKAST [Concomitant]
     Active Substance: MONTELUKAST SODIUM
  5. SYNTHROID 0.05MG [Concomitant]
  6. ATENOLOL 25MG [Concomitant]
     Active Substance: ATENOLOL
  7. LORAZEPAM 1MG [Concomitant]
     Active Substance: LORAZEPAM
  8. MULTIVITAMIN [Concomitant]
     Active Substance: VITAMINS
  9. WAFARIN 5 MG [Concomitant]
  10. AJOVY [Suspect]
     Active Substance: FREMANEZUMAB-VFRM
     Indication: MIGRAINE
     Dosage: ?          OTHER FREQUENCY:ONCE PER MONTH;??
     Route: 058
     Dates: start: 20201111, end: 20201210
  11. OMEPRAZOLE 40MG [Concomitant]
     Active Substance: OMEPRAZOLE
  12. VITAMIN D3 2,000 UNITS [Concomitant]
  13. DULOXETINE 60MG [Concomitant]
     Active Substance: DULOXETINE
  14. VENTOLIN HFA INHALER [Concomitant]

REACTIONS (1)
  - Heart rate increased [None]

NARRATIVE: CASE EVENT DATE: 20201210
